FAERS Safety Report 5917069-5 (Version None)
Quarter: 2008Q4

REPORT INFORMATION
  Report Type: 
  Country: None (occurrence: None)
  Receive Date: 20081014
  Receipt Date: 20081002
  Transmission Date: 20090506
  Serious: Yes (Other)
  Sender: FDA-Public Use
  Company Number: US-BAYER-200835016NA

PATIENT
  Age: 58 Year
  Sex: Male

DRUGS (1)
  1. BETASERON [Suspect]
     Indication: MULTIPLE SCLEROSIS
     Dosage: TOTAL DAILY DOSE: 2 MIU
     Route: 058
     Dates: start: 20080917

REACTIONS (3)
  - HYPOPHAGIA [None]
  - INFLUENZA LIKE ILLNESS [None]
  - WEIGHT DECREASED [None]
